FAERS Safety Report 16873255 (Version 1)
Quarter: 2019Q4

REPORT INFORMATION
  Report Type: Spontaneous
  Country: US (occurrence: US)
  Receive Date: 20191001
  Receipt Date: 20191001
  Transmission Date: 20200122
  Serious: No
  Sender: FDA-Public Use
  Company Number: US-BRISTOL-MYERS SQUIBB COMPANY-BMS-2019-094173

PATIENT
  Sex: Female
  Weight: 49.8 kg

DRUGS (2)
  1. SERTRALINE [Concomitant]
     Active Substance: SERTRALINE HYDROCHLORIDE
     Indication: PRODUCT USED FOR UNKNOWN INDICATION
     Dosage: QD, (1.5 TABLETS BY ORAL ROUTE 1 TIME PER DAY MOOD)
     Route: 048
  2. ELIQUIS [Suspect]
     Active Substance: APIXABAN
     Indication: PRODUCT USED FOR UNKNOWN INDICATION
     Dosage: BID, (0.5 TABLET BY ORAL ROUTE 2 TIMES PER DAY)
     Route: 048

REACTIONS (1)
  - Circumstance or information capable of leading to medication error [Unknown]
